FAERS Safety Report 8344694-7 (Version None)
Quarter: 2012Q2

REPORT INFORMATION
  Report Type: 
  Country: None (occurrence: None)
  Receive Date: 20120508
  Receipt Date: 20120423
  Transmission Date: 20120825
  Serious: Yes (Hospitalization, Other)
  Sender: FDA-Public Use
  Company Number: JP-ROCHE-583834

PATIENT
  Sex: Female
  Weight: 49 kg

DRUGS (5)
  1. FLUOROURACIL [Concomitant]
     Dosage: ROUTE: INTRAVENOUS DRIP.
     Route: 042
  2. IRINOTECAN HCL [Concomitant]
     Route: 041
  3. FLUOROURACIL [Concomitant]
     Dosage: ROUTE: INTRAVENOUS BOLUS.
     Route: 042
  4. LEVOLEUCOVORIN CALCIUM [Concomitant]
     Route: 041
  5. AVASTIN [Suspect]
     Indication: COLON CANCER
     Route: 041
     Dates: start: 20080110, end: 20080821

REACTIONS (2)
  - OEDEMA [None]
  - THROMBOSIS [None]
